FAERS Safety Report 9861621 (Version 1)
Quarter: 2014Q1

REPORT INFORMATION
  Report Type: Spontaneous
  Country: GB (occurrence: GB)
  Receive Date: 20140203
  Receipt Date: 20140203
  Transmission Date: 20141002
  Serious: Yes (Other)
  Sender: FDA-Public Use
  Company Number: GB-BIOGENIDEC-2014BI009357

PATIENT
  Age: 30 Year
  Sex: Female
  Weight: 86 kg

DRUGS (3)
  1. AVONEX [Suspect]
     Indication: MULTIPLE SCLEROSIS
     Route: 058
     Dates: start: 201111
  2. FOLIC ACID [Concomitant]
     Route: 048
  3. VITAMIN B12 [Concomitant]

REACTIONS (1)
  - Stillbirth [Unknown]
